FAERS Safety Report 18858290 (Version 1)
Quarter: 2021Q1

REPORT INFORMATION
  Report Type: Spontaneous
  Country: US (occurrence: US)
  Receive Date: 20210205
  Receipt Date: 20210205
  Transmission Date: 20210420
  Serious: Yes (Death)
  Sender: FDA-Public Use
  Company Number: None

PATIENT
  Age: 5 Month
  Weight: 4.64 kg

DRUGS (1)
  1. SYNAGIS [Suspect]
     Active Substance: PALIVIZUMAB
     Dosage: ?          OTHER FREQUENCY:ONCE MONTHLY;?
     Route: 030
     Dates: start: 20201222, end: 20210121

REACTIONS (1)
  - Death [None]
